FAERS Safety Report 11368858 (Version 3)
Quarter: 2016Q1

REPORT INFORMATION
  Report Type: Report from Study
  Country: US (occurrence: US)
  Receive Date: 20150812
  Receipt Date: 20160113
  Transmission Date: 20160525
  Serious: Yes (Hospitalization)
  Sender: FDA-Public Use
  Company Number: US-AMGEN-USASL2015081929

PATIENT
  Age: 63 Year
  Sex: Male

DRUGS (1)
  1. ENBREL [Suspect]
     Active Substance: ETANERCEPT
     Indication: RHEUMATOID ARTHRITIS
     Dosage: 50 MG, QWK
     Route: 058
     Dates: start: 2013, end: 201502

REACTIONS (11)
  - Blood count abnormal [Unknown]
  - Stent placement [Unknown]
  - Weight decreased [Unknown]
  - Pericardial calcification [Unknown]
  - Decubitus ulcer [Recovering/Resolving]
  - Fall [Unknown]
  - Cardiac disorder [Unknown]
  - Hospitalisation [Unknown]
  - Unevaluable event [Unknown]
  - Blood pressure abnormal [Unknown]
  - Asthenia [Unknown]

NARRATIVE: CASE EVENT DATE: 2015
